FAERS Safety Report 13420040 (Version 2)
Quarter: 2017Q3

REPORT INFORMATION
  Report Type: Spontaneous
  Country: US (occurrence: US)
  Receive Date: 20170407
  Receipt Date: 20170703
  Transmission Date: 20171127
  Serious: Yes (Other)
  Sender: FDA-Public Use
  Company Number: US-JNJFOC-20170303166

PATIENT
  Age: 65 Year
  Sex: Female
  Weight: 68.04 kg

DRUGS (2)
  1. STELARA [Suspect]
     Active Substance: USTEKINUMAB
     Indication: CROHN^S DISEASE
     Dosage: INITIAL INTRAVENOUS INDUCTION DOSE
     Dates: start: 20170104, end: 20170104
  2. STELARA [Suspect]
     Active Substance: USTEKINUMAB
     Indication: CROHN^S DISEASE
     Dosage: SUBCUTANEOUS DOSING
     Dates: start: 20170221

REACTIONS (5)
  - Accidental exposure to product [Recovered/Resolved]
  - Product packaging issue [Unknown]
  - Needle issue [Unknown]
  - Crohn^s disease [Unknown]
  - Underdose [Unknown]

NARRATIVE: CASE EVENT DATE: 20170215
